FAERS Safety Report 8836745 (Version 2)
Quarter: 2012Q4

REPORT INFORMATION
  Report Type: Report from Study
  Country: US (occurrence: US)
  Receive Date: 20121012
  Receipt Date: 20121106
  Transmission Date: 20130627
  Serious: Yes (Other)
  Sender: FDA-Public Use
  Company Number: US-CELGENEUS-163-C5013-12100214

PATIENT
  Age: 63 Year
  Sex: Male
  Weight: 112.59 kg

DRUGS (40)
  1. CC-5013 [Suspect]
     Indication: PROSTATE CANCER
     Dosage: 25 Milligram
     Route: 048
     Dates: start: 20110209, end: 20110601
  2. DOCETAXEL [Suspect]
     Indication: PROSTATE CANCER
     Dosage: 200 Milligram
     Route: 065
     Dates: start: 20110209, end: 20110511
  3. PREDNISONE [Suspect]
     Indication: PROSTATE CANCER
     Dosage: 10 Milligram
     Route: 048
     Dates: start: 20110209, end: 20110601
  4. PHOSLO [Concomitant]
     Indication: HYPERPHOSPHATEMIA
     Dosage: 2001
     Route: 065
  5. NEULASTA [Concomitant]
     Indication: NEUTROPENIA
     Route: 065
  6. SENOKOT [Concomitant]
     Indication: CONSTIPATION
     Dosage: 8.6 Milligram
     Route: 048
  7. COLACE [Concomitant]
     Indication: CONSTIPATION
     Dosage: 300 Milligram
     Route: 048
  8. LACTULOSE [Concomitant]
     Indication: CONSTIPATION
     Dosage: 10 Gram
     Route: 048
  9. CLACK [Concomitant]
     Indication: DRUG USE FOR UNKNOWN INDICATION
     Route: 065
  10. MARINOL [Concomitant]
     Indication: DRUG USE FOR UNKNOWN INDICATION
     Dosage: 5 Milligram
     Route: 048
  11. OXYCODONE [Concomitant]
     Indication: DRUG USE FOR UNKNOWN INDICATION
     Dosage: 20 Milligram
     Route: 065
  12. OXYCODONE SR [Concomitant]
     Indication: BREAKTHROUGH PAIN
     Dosage: 40 Milligram
     Route: 065
  13. OXYCODONE SR [Concomitant]
     Dosage: 5 Milligram
     Route: 065
  14. VITAMIN D [Concomitant]
     Indication: DRUG USE FOR UNKNOWN INDICATION
     Route: 065
  15. VITAMIN C [Concomitant]
     Indication: DRUG USE FOR UNKNOWN INDICATION
     Route: 065
  16. CALCIUM [Concomitant]
     Indication: DRUG USE FOR UNKNOWN INDICATION
     Route: 065
  17. MULTIVITAMINS [Concomitant]
     Indication: DRUG USE FOR UNKNOWN INDICATION
     Route: 065
  18. PROMETHAZINE HCL [Concomitant]
     Indication: NAUSEA
     Dosage: 25 Milligram
     Route: 048
  19. DILAUDID [Concomitant]
     Indication: PAIN
     Dosage: 2 Milligram
     Route: 048
  20. DIFLUCAN [Concomitant]
     Indication: DRUG USE FOR UNKNOWN INDICATION
     Dosage: 200 Milligram
     Route: 048
  21. PROBIOTICS [Concomitant]
     Indication: DRUG USE FOR UNKNOWN INDICATION
     Route: 048
  22. ARANESP [Concomitant]
     Indication: DRUG USE FOR UNKNOWN INDICATION
     Route: 065
     Dates: start: 20120525
  23. STOOL SOFTENER [Concomitant]
     Indication: CONSTIPATION
     Dosage: 240 Milligram
     Route: 048
  24. FOLFOX [Concomitant]
     Indication: PROSTATE CANCER
     Route: 065
     Dates: start: 201106
  25. FOLFOX [Concomitant]
     Route: 065
  26. AVASTATIN [Concomitant]
     Indication: PROSTATE CANCER
     Route: 065
     Dates: start: 201106
  27. AVASTATIN [Concomitant]
     Route: 065
  28. VICODIN [Concomitant]
     Indication: PAIN
     Route: 065
  29. ABIRATERONE [Concomitant]
     Indication: PROSTATE CANCER
     Dosage: 1000 Milligram
     Route: 048
     Dates: start: 20120328, end: 20120608
  30. ENEMA [Concomitant]
     Indication: DRUG USE FOR UNKNOWN INDICATION
     Route: 065
  31. NEURONTIN [Concomitant]
     Indication: NEUROPATHY PERIPHERAL
     Dosage: 900 Milligram
     Route: 048
  32. NORMAL SALINE [Concomitant]
     Indication: DRUG USE FOR UNKNOWN INDICATION
     Dosage: 10 milliliter
     Dates: start: 2012
  33. NORMAL SALINE [Concomitant]
     Dosage: 10 milliliter
     Dates: start: 2012
  34. HEPARIN LOCK FLUSH [Concomitant]
     Indication: DRUG USE FOR UNKNOWN INDICATION
     Dosage: 500 unit
     Dates: start: 2012
  35. HEPARIN LOCK FLUSH [Concomitant]
     Dosage: 10 unit
     Dates: start: 2012
  36. FLULAVAL [Concomitant]
     Indication: DRUG USE FOR UNKNOWN INDICATION
     Dosage: .5 milliliter
     Route: 030
     Dates: start: 2012
  37. PROCHLORPERAZINE MALEATE [Concomitant]
     Indication: DRUG USE FOR UNKNOWN INDICATION
     Route: 048
  38. ONDANSETRON [Concomitant]
     Indication: NAUSEA
     Dosage: 8 Milligram
     Route: 060
  39. COUMADIN [Concomitant]
     Indication: DRUG USE FOR UNKNOWN INDICATION
     Dosage: 10 Milligram
     Route: 048
  40. FLOMAX [Concomitant]
     Indication: DRUG USE FOR UNKNOWN INDICATION
     Dosage: .4 Milligram
     Route: 048

REACTIONS (1)
  - Colon cancer metastatic [Not Recovered/Not Resolved]
